FAERS Safety Report 22262136 (Version 1)
Quarter: 2023Q2

REPORT INFORMATION
  Report Type: Spontaneous
  Country: US (occurrence: US)
  Receive Date: 20230428
  Receipt Date: 20230428
  Transmission Date: 20230721
  Serious: No
  Sender: FDA-Public Use
  Company Number: US-OYSTER POINT PHARMA, INC-US-OYS-23-000223

PATIENT
  Sex: Male

DRUGS (1)
  1. TYRVAYA [Suspect]
     Active Substance: VARENICLINE TARTRATE
     Indication: Dry eye
     Dosage: UNK, BID
     Route: 045
     Dates: start: 202302

REACTIONS (7)
  - Balance disorder [Unknown]
  - Visual impairment [Not Recovered/Not Resolved]
  - Sneezing [Unknown]
  - Cough [Unknown]
  - Product after taste [Unknown]
  - Drug ineffective [Unknown]
  - Product dose omission issue [Unknown]
